FAERS Safety Report 21894406 (Version 1)
Quarter: 2023Q1

REPORT INFORMATION
  Report Type: Spontaneous
  Country: GB (occurrence: GB)
  Receive Date: 20230121
  Receipt Date: 20230121
  Transmission Date: 20230417
  Serious: Yes (Death, Other)
  Sender: FDA-Public Use
  Company Number: GB-MHRA-MED-202212051526479510-CPDMQ

PATIENT
  Age: 79 Year
  Sex: Male

DRUGS (3)
  1. NAPROXEN [Suspect]
     Active Substance: NAPROXEN
     Indication: Gout
     Dosage: 500 MILLIGRAM, TWO TIMES A DAY
     Route: 065
     Dates: start: 20221115, end: 20221123
  2. COLCHICINE [Suspect]
     Active Substance: COLCHICINE
     Indication: Gout
     Dosage: 500 MICROGRAM, TWO TIMES A DAY
     Route: 065
     Dates: start: 20221115, end: 20221122
  3. DARBEPOETIN ALFA [Concomitant]
     Active Substance: DARBEPOETIN ALFA
     Indication: Myelodysplastic syndrome
     Dosage: UNK
     Route: 065
     Dates: start: 20211111

REACTIONS (7)
  - Upper gastrointestinal haemorrhage [Fatal]
  - Myocardial infarction [Fatal]
  - Haemoglobin decreased [Fatal]
  - Melaena [Fatal]
  - Blood urea increased [Fatal]
  - Troponin I increased [Fatal]
  - Circulatory collapse [Fatal]

NARRATIVE: CASE EVENT DATE: 20221122
